FAERS Safety Report 8960302 (Version 1)
Quarter: 2012Q4

REPORT INFORMATION
  Report Type: 
  Country: ZA (occurrence: ZA)
  Receive Date: 20121212
  Receipt Date: 20121212
  Transmission Date: 20130627
  Serious: Yes (Hospitalization)
  Sender: FDA-Public Use
  Company Number: ZA-ELI_LILLY_AND_COMPANY-ZA201211009130

PATIENT
  Sex: Female

DRUGS (3)
  1. HUMALOG 25% LISPRO, 75% NPL [Suspect]
     Indication: DIABETES MELLITUS
     Dosage: 22 IU, bid
     Route: 058
     Dates: start: 201207
  2. LIPID MODIFYING AGENTS [Concomitant]
     Indication: BLOOD CHOLESTEROL
     Dosage: UNK, qd
     Route: 048
  3. ANTIHYPERTENSIVES [Concomitant]
     Indication: HYPERTENSION
     Dosage: UNK, qd

REACTIONS (1)
  - Musculoskeletal chest pain [Unknown]
